FAERS Safety Report 24142036 (Version 2)
Quarter: 2024Q3

REPORT INFORMATION
  Report Type: Spontaneous
  Country: US (occurrence: US)
  Receive Date: 20240726
  Receipt Date: 20240807
  Transmission Date: 20241017
  Serious: No
  Sender: PFIZER
  Company Number: US-PFIZER INC-202400223872

PATIENT
  Age: 63 Year
  Sex: Female
  Weight: 45.351 kg

DRUGS (3)
  1. PAXLOVID [Suspect]
     Active Substance: NIRMATRELVIR\RITONAVIR
     Dosage: 150 MG, 2X/DAY
     Route: 048
     Dates: start: 20240716, end: 20240721
  2. SYNTHROID [Concomitant]
     Active Substance: LEVOTHYROXINE SODIUM
     Indication: Thyroid disorder
     Dosage: 88 UG, DAILY
     Dates: start: 2014
  3. OLMESARTAN [Concomitant]
     Active Substance: OLMESARTAN
     Indication: Blood pressure abnormal
     Dosage: 5 MG, DAILY
     Dates: start: 2019

REACTIONS (5)
  - Pain [Recovered/Resolved]
  - Nasal congestion [Recovered/Resolved]
  - Brain fog [Recovered/Resolved]
  - Oropharyngeal pain [Recovered/Resolved]
  - Incorrect dose administered [Unknown]

NARRATIVE: CASE EVENT DATE: 20240716
